FAERS Safety Report 19245163 (Version 1)
Quarter: 2021Q2

REPORT INFORMATION
  Report Type: Other
  Country: US (occurrence: US)
  Receive Date: 20210512
  Receipt Date: 20210512
  Transmission Date: 20210717
  Serious: Yes (Other)
  Sender: FDA-Public Use
  Company Number: US-ROCHE-2824761

PATIENT
  Sex: Male

DRUGS (13)
  1. NORVASC [Concomitant]
     Active Substance: AMLODIPINE BESYLATE
     Route: 048
  2. HYTONE (UNITED STATES) [Concomitant]
     Dosage: APPLY TO FACE TWICE DAILY UP TO 2 WEEKS PER MONTH
  3. KENALOG [Concomitant]
     Active Substance: TRIAMCINOLONE ACETONIDE
     Dosage: APPLY TO ITCHY RASH ON BACK, CHEST, AND ARM TWICE DAILY AS NEEDED.
  4. VALTREX [Concomitant]
     Active Substance: VALACYCLOVIR HYDROCHLORIDE
     Route: 048
  5. CLOBEX (UNITED STATES) [Concomitant]
     Dosage: APPLY THIN FILM TO THE AFFECTED AREA ON SCALP, LEAVE IT FOR 15 MINUTES THEN LATHER AND RINSE EVERY D
  6. SPECTAZOLE [Concomitant]
     Active Substance: ECONAZOLE NITRATE
     Dosage: USE ON THE AREAS OF FUNGUS ON THE TOES
  7. CELLCEPT [Suspect]
     Active Substance: MYCOPHENOLATE MOFETIL\MYCOPHENOLATE MOFETIL HYDROCHLORIDE
     Indication: DERMATITIS CONTACT
     Route: 048
     Dates: start: 2016
  8. CELLCEPT [Suspect]
     Active Substance: MYCOPHENOLATE MOFETIL\MYCOPHENOLATE MOFETIL HYDROCHLORIDE
     Indication: DERMATITIS CONTACT
  9. LUMIGAN [Concomitant]
     Active Substance: BIMATOPROST
     Dosage: INSTIL 1 DROP IN LEFT EYE AT BEDTIME
  10. XARELTO [Concomitant]
     Active Substance: RIVAROXABAN
     Dosage: 1 TABLET AT NIGHT
     Route: 048
  11. TEMOVATE [Concomitant]
     Active Substance: CLOBETASOL PROPIONATE
     Dosage: APPLY TO SCALY ITCHY AREAS ON SCALP TWICE DAILY AS NEEDED
  12. LOPRESSOR [Concomitant]
     Active Substance: METOPROLOL TARTRATE
     Route: 048
  13. LIPITOR [Concomitant]
     Active Substance: ATORVASTATIN CALCIUM
     Route: 048

REACTIONS (2)
  - Ophthalmic herpes simplex [Unknown]
  - Off label use [Unknown]
